FAERS Safety Report 9849589 (Version 1)
Quarter: 2014Q1

REPORT INFORMATION
  Report Type: Spontaneous
  Country: US (occurrence: None)
  Receive Date: 20140127
  Receipt Date: 20140127
  Transmission Date: 20141002
  Serious: Yes (Other)
  Sender: FDA-Public Use
  Company Number: None

PATIENT
  Age: 11 Year
  Sex: Female
  Weight: 40.8 kg

DRUGS (1)
  1. MORPHINE [Suspect]
     Indication: PAIN
     Dosage: 90 DAYS FROM COMPOUNDED DATE
     Route: 042

REACTIONS (3)
  - Chest discomfort [None]
  - Dyspnoea [None]
  - Feeling abnormal [None]
